FAERS Safety Report 6385460-1 (Version None)
Quarter: 2009Q4

REPORT INFORMATION
  Report Type: 
  Country: None (occurrence: None)
  Receive Date: 20091002
  Receipt Date: 20080825
  Transmission Date: 20100525
  Serious: No
  Sender: FDA-Public Use
  Company Number: US-ASTRAZENECA-2008UW17423

PATIENT
  Age: 67 Year
  Sex: Female
  Weight: 77.1 kg

DRUGS (10)
  1. ARIMIDEX [Suspect]
     Indication: BREAST CANCER
     Route: 048
  2. ARMOUR [Concomitant]
  3. TOPROL-XL [Concomitant]
  4. COZAAR [Concomitant]
  5. DILTIAZEM [Concomitant]
  6. HYDROCHLOROTHIAZIDE [Concomitant]
  7. XANAX [Concomitant]
  8. GLUCOPHAGE [Concomitant]
  9. PRANDIN [Concomitant]
  10. AVANDIA [Concomitant]

REACTIONS (3)
  - CATARACT [None]
  - NAUSEA [None]
  - POLYARTHRITIS [None]
